FAERS Safety Report 5331129-1 (Version None)
Quarter: 2007Q2

REPORT INFORMATION
  Report Type: 
  Country: None (occurrence: None)
  Receive Date: 20070522
  Receipt Date: 20070511
  Transmission Date: 20071010
  Serious: Yes (Hospitalization, Other)
  Sender: FDA-Public Use
  Company Number: JP-AVENTIS-200712019GDDC

PATIENT
  Age: 65 Year
  Sex: Male

DRUGS (2)
  1. FLUOROURACIL [Suspect]
     Route: 013
     Dates: start: 20050201, end: 20050601
  2. GEMCITABINE HCL [Concomitant]
     Dates: start: 20050201, end: 20050601

REACTIONS (2)
  - LIVER ABSCESS [None]
  - VASCULAR PSEUDOANEURYSM [None]
